FAERS Safety Report 17109259 (Version 3)
Quarter: 2020Q1

REPORT INFORMATION
  Report Type: Spontaneous
  Country: US (occurrence: US)
  Receive Date: 20191204
  Receipt Date: 20200124
  Transmission Date: 20200409
  Serious: Yes (Hospitalization, Other)
  Sender: FDA-Public Use
  Company Number: US-ABBVIE-19K-163-3165173-00

PATIENT
  Age: 62 Year
  Sex: Male
  Weight: 74 kg

DRUGS (5)
  1. IMBRUVICA [Suspect]
     Active Substance: IBRUTINIB
     Indication: WALDENSTROM^S MACROGLOBULINAEMIA
     Dosage: 140 MG
     Route: 048
     Dates: start: 20140815, end: 201611
  2. IMBRUVICA [Suspect]
     Active Substance: IBRUTINIB
     Dosage: 140 MG, UNK
     Route: 048
     Dates: start: 2016, end: 201706
  3. IMBRUVICA [Suspect]
     Active Substance: IBRUTINIB
     Dosage: 140 MG, UNK
     Route: 048
     Dates: start: 201708
  4. IMBRUVICA [Suspect]
     Active Substance: IBRUTINIB
     Route: 048
     Dates: start: 201707
  5. IMBRUVICA [Suspect]
     Active Substance: IBRUTINIB
     Dosage: 140 MG, UNK
     Route: 048
     Dates: start: 20191029, end: 20191101

REACTIONS (6)
  - Skin mass [Recovered/Resolved]
  - Cholelithiasis [Recovered/Resolved]
  - Tremor [Unknown]
  - Pneumonia [Recovered/Resolved]
  - Pyrexia [Not Recovered/Not Resolved]
  - Withdrawal syndrome [Unknown]

NARRATIVE: CASE EVENT DATE: 20170606
